FAERS Safety Report 6074591-1 (Version None)
Quarter: 2009Q1

REPORT INFORMATION
  Report Type: 
  Country: None (occurrence: None)
  Receive Date: 20090209
  Receipt Date: 20090126
  Transmission Date: 20090719
  Serious: Yes (Other)
  Sender: FDA-Public Use
  Company Number: 237199K07USA

PATIENT
  Age: 43 Year
  Sex: Female

DRUGS (4)
  1. REBIF [Suspect]
     Indication: MULTIPLE SCLEROSIS
     Dosage: 44 MCG, 3 IN 1 WEEKS, SUBCUTANEOUS
     Route: 058
     Dates: start: 20050824
  2. CENESTIN [Suspect]
  3. MULTI-VITAMINS [Concomitant]
  4. ASPIRIN [Concomitant]

REACTIONS (1)
  - BREAST CANCER FEMALE [None]
